FAERS Safety Report 5873966-0 (Version None)
Quarter: 2008Q3

REPORT INFORMATION
  Report Type: 
  Country: None (occurrence: None)
  Receive Date: 20080908
  Receipt Date: 20080829
  Transmission Date: 20090109
  Serious: Yes (Other)
  Sender: FDA-Public Use
  Company Number: JP-MERCK-0808USA04635

PATIENT
  Age: 78 Year
  Sex: Female

DRUGS (1)
  1. PEPCID [Suspect]
     Route: 042
     Dates: start: 20080709, end: 20080711

REACTIONS (1)
  - INAPPROPRIATE ANTIDIURETIC HORMONE SECRETION [None]
